FAERS Safety Report 7723522-4 (Version None)
Quarter: 2011Q3

REPORT INFORMATION
  Report Type: 
  Country: None (occurrence: None)
  Receive Date: 20110901
  Receipt Date: 20110819
  Transmission Date: 20111222
  Serious: Yes (Other)
  Sender: FDA-Public Use
  Company Number: PHHY2011AR75395

PATIENT

DRUGS (1)
  1. DIOVAN [Suspect]
     Indication: NERVOUSNESS
     Dosage: 160 MG, UNK
     Dates: start: 20110501

REACTIONS (5)
  - CONFUSIONAL STATE [None]
  - IRRITABILITY [None]
  - MEMORY IMPAIRMENT [None]
  - NERVOUSNESS [None]
  - FEELING ABNORMAL [None]
